FAERS Safety Report 6580546-0 (Version None)
Quarter: 2010Q1

REPORT INFORMATION
  Report Type: 
  Country: None (occurrence: None)
  Receive Date: 20100212
  Receipt Date: 20100201
  Transmission Date: 20100710
  Serious: Yes (Disabling)
  Sender: FDA-Public Use
  Company Number: FR-PFIZER INC-2010012815

PATIENT
  Age: 86 Year
  Sex: Male

DRUGS (11)
  1. LYRICA [Suspect]
     Dosage: 50 MG, A DAY
     Route: 048
     Dates: start: 20090424, end: 20090425
  2. LYRICA [Suspect]
     Dosage: 25 MG, A DAY
     Route: 048
     Dates: start: 20090422, end: 20090423
  3. XANAX [Suspect]
     Dosage: 0.75 MG, 1X/DAY
     Route: 048
  4. OLMETEC [Suspect]
     Dosage: 20 MG, 1X/DAY
     Route: 048
  5. CARDENSIEL [Suspect]
     Dosage: 1.25 MG, 1X/DAY
     Route: 048
  6. LASILIX [Suspect]
     Dosage: 20 MG, 1X/DAY
     Route: 048
  7. KARDEGIC [Concomitant]
     Dosage: 75 MG PER DAY
     Route: 048
  8. DAFALGAN [Concomitant]
     Dosage: 500 MG, 6 A DAY
  9. PLAVIX [Concomitant]
     Dosage: 75 MG, 1X/DAY
  10. NEXIUM [Concomitant]
     Dosage: 20 MG, 1X/DAY
  11. DOMPERIDONE [Concomitant]
     Dosage: 3 DF PER DAY

REACTIONS (2)
  - FALL [None]
  - FEMORAL NECK FRACTURE [None]
